FAERS Safety Report 5340378-8 (Version None)
Quarter: 2007Q2

REPORT INFORMATION
  Report Type: 
  Country: None (occurrence: None)
  Receive Date: 20070405
  Receipt Date: 20070111
  Transmission Date: 20071010
  Serious: Yes (Other)
  Sender: FDA-Public Use
  Company Number: US200701002964

PATIENT
  Age: 57 Year
  Sex: Male

DRUGS (3)
  1. CYMBALTA [Suspect]
     Dosage: 90 MG
     Dates: start: 20061001, end: 20061101
  2. OTHER ANALGESICS AND ANTIPYRETICS [Concomitant]
  3. MARINOL [Concomitant]

REACTIONS (1)
  - CONVULSION [None]
